FAERS Safety Report 25995105 (Version 1)
Quarter: 2025Q4

REPORT INFORMATION
  Report Type: Spontaneous
  Country: AU (occurrence: AU)
  Receive Date: 20251104
  Receipt Date: 20251104
  Transmission Date: 20260119
  Serious: Yes (Hospitalization)
  Sender: MYLAN
  Company Number: AU-MYLANLABS-2025M1093338

PATIENT
  Age: 6 Decade
  Sex: Female

DRUGS (6)
  1. GEMCITABINE [Suspect]
     Active Substance: GEMCITABINE
     Indication: Adenocarcinoma pancreas
     Dosage: UNK, SIX CYCLES OF ADJUVANT GEMCITABINE CHEMOTHERAPY
  2. GEMCITABINE [Suspect]
     Active Substance: GEMCITABINE
     Dosage: UNK,SYSTEMIC CHEMOTHERAPY
  3. IRINOTECAN [Suspect]
     Active Substance: IRINOTECAN
     Indication: Adenocarcinoma pancreas
     Dosage: FOLFIRI REGIMEN
  4. PACLITAXEL [Suspect]
     Active Substance: PACLITAXEL
     Indication: Adenocarcinoma pancreas
     Dosage: UNK, SYSTEMIC CHEMOTHERAPY
  5. FLUOROURACIL [Suspect]
     Active Substance: FLUOROURACIL
     Indication: Adenocarcinoma pancreas
     Dosage: UNK, FOLFIRI REGIMEN
  6. LEUCOVORIN [Suspect]
     Active Substance: LEUCOVORIN\LEUCOVORIN CALCIUM
     Indication: Adenocarcinoma pancreas
     Dosage: UNK, FOLFIRI REGIMEN

REACTIONS (2)
  - Disease progression [Unknown]
  - Drug ineffective [Unknown]
